FAERS Safety Report 20499337 (Version 1)
Quarter: 2022Q1

REPORT INFORMATION
  Report Type: Spontaneous
  Country: CN (occurrence: CN)
  Receive Date: 20220222
  Receipt Date: 20220222
  Transmission Date: 20220424
  Serious: Yes (Other)
  Sender: FDA-Public Use
  Company Number: CN-SA-SAC20220216000726

PATIENT
  Age: 48 Year
  Sex: Male
  Weight: 72 kg

DRUGS (3)
  1. ENOXAPARIN SODIUM [Suspect]
     Active Substance: ENOXAPARIN SODIUM
     Indication: Anticoagulant therapy
     Dosage: 0.4 ML, QD
     Route: 058
     Dates: start: 20211207, end: 20211212
  2. GLUCOSE INJECTION MP [Concomitant]
     Indication: Haemostasis
     Dosage: 250 ML
  3. PHYTONADIONE [Concomitant]
     Active Substance: PHYTONADIONE
     Indication: Haemostasis
     Dosage: 10 MG
     Route: 041

REACTIONS (2)
  - Haemorrhage [Recovering/Resolving]
  - Subcutaneous haematoma [Recovering/Resolving]

NARRATIVE: CASE EVENT DATE: 20211212
